FAERS Safety Report 10567083 (Version 3)
Quarter: 2014Q4

REPORT INFORMATION
  Report Type: Report from Study
  Country: US (occurrence: US)
  Receive Date: 20141105
  Receipt Date: 20141125
  Transmission Date: 20150529
  Serious: Yes (Other)
  Sender: FDA-Public Use
  Company Number: US-ACTELION-A-US2014-106868

PATIENT
  Age: 82 Year
  Sex: Female

DRUGS (3)
  1. TYVASO [Concomitant]
     Active Substance: TREPROSTINIL
  2. ADCIRCA [Concomitant]
     Active Substance: TADALAFIL
  3. MACITENTAN [Suspect]
     Active Substance: MACITENTAN
     Indication: PULMONARY ARTERIAL HYPERTENSION
     Dosage: 10 MG, QD
     Route: 048
     Dates: start: 20140929

REACTIONS (7)
  - Pulmonary oedema [Unknown]
  - Cough [Unknown]
  - Nausea [Unknown]
  - Headache [Unknown]
  - Wheezing [Unknown]
  - Oedema [Unknown]
  - Dyspnoea [Unknown]
